FAERS Safety Report 18628742 (Version 1)
Quarter: 2020Q4

REPORT INFORMATION
  Report Type: Spontaneous
  Country: GB (occurrence: GB)
  Receive Date: 20201217
  Receipt Date: 20201217
  Transmission Date: 20210114
  Serious: Yes (Other)
  Sender: FDA-Public Use
  Company Number: GB-PFIZER INC-2020493498

PATIENT
  Age: 24 Year
  Sex: Female
  Weight: 60 kg

DRUGS (4)
  1. SERTRALINE HYDROCHLORIDE. [Concomitant]
     Active Substance: SERTRALINE HYDROCHLORIDE
  2. CERAZETTE [DESOGESTREL] [Concomitant]
     Active Substance: DESOGESTREL
  3. DOXYCYCLINE MONOHYDRATE [Suspect]
     Active Substance: DOXYCYCLINE
     Indication: UREAPLASMA INFECTION
     Dosage: 200 MG, 1X/DAY
     Route: 048
     Dates: start: 20201117, end: 20201118
  4. DOXYCYCLINE MONOHYDRATE [Suspect]
     Active Substance: DOXYCYCLINE
     Indication: UREAPLASMA INFECTION
     Dosage: 100 MG, 1X/DAY
     Route: 048
     Dates: start: 20201118, end: 20201120

REACTIONS (2)
  - Nausea [Unknown]
  - Anxiety [Recovered/Resolved]

NARRATIVE: CASE EVENT DATE: 20201117
